FAERS Safety Report 13252590 (Version 3)
Quarter: 2017Q2

REPORT INFORMATION
  Report Type: Report from Study
  Country: US (occurrence: US)
  Receive Date: 20170220
  Receipt Date: 20170418
  Transmission Date: 20170830
  Serious: Yes (Other)
  Sender: FDA-Public Use
  Company Number: US-BAYER-2017-029661

PATIENT
  Age: 69 Year
  Sex: Female

DRUGS (1)
  1. STIVARGA [Suspect]
     Active Substance: REGORAFENIB
     Indication: COLORECTAL CANCER
     Dosage: 160 MG, QD
     Route: 048
     Dates: start: 20170204

REACTIONS (6)
  - Urinary retention [None]
  - Asthenia [None]
  - Fatigue [Not Recovered/Not Resolved]
  - Cystitis [None]
  - Dry skin [None]
  - Urinary tract infection [None]

NARRATIVE: CASE EVENT DATE: 2017
